FAERS Safety Report 7286914-6 (Version None)
Quarter: 2011Q1

REPORT INFORMATION
  Report Type: 
  Country: None (occurrence: None)
  Receive Date: 20110211
  Receipt Date: 20110202
  Transmission Date: 20110831
  Serious: Yes (Hospitalization)
  Sender: FDA-Public Use
  Company Number: US-BIOGENIDEC-2011BI004069

PATIENT
  Age: 32 Year
  Sex: Male
  Weight: 83 kg

DRUGS (1)
  1. TYSABRI [Suspect]
     Indication: MULTIPLE SCLEROSIS
     Route: 042
     Dates: start: 20081001, end: 20101101

REACTIONS (4)
  - FATIGUE [None]
  - LOWER LIMB FRACTURE [None]
  - DECREASED APPETITE [None]
  - HEADACHE [None]
